FAERS Safety Report 19728284 (Version 1)
Quarter: 2021Q3

REPORT INFORMATION
  Report Type: Spontaneous
  Country: GB (occurrence: GB)
  Receive Date: 20210820
  Receipt Date: 20210820
  Transmission Date: 20211014
  Serious: Yes (Hospitalization)
  Sender: FDA-Public Use
  Company Number: GB-EMD SERONO-9258725

PATIENT
  Sex: Male

DRUGS (1)
  1. REBIF [Suspect]
     Active Substance: INTERFERON BETA-1A
     Indication: MULTIPLE SCLEROSIS
     Dosage: 0.5ML (12 MILLION UNITS) SOLUTION FOR INJECTION PRE?FILLED SYRINGES
     Route: 058
     Dates: start: 20040913

REACTIONS (2)
  - Infection [Unknown]
  - Product administration interrupted [Unknown]
